FAERS Safety Report 7985406-6 (Version None)
Quarter: 2011Q4

REPORT INFORMATION
  Report Type: 
  Country: None (occurrence: None)
  Receive Date: 20111216
  Receipt Date: 20111209
  Transmission Date: 20120403
  Serious: Yes (Other)
  Sender: FDA-Public Use
  Company Number: US-JNJFOC-20111204585

PATIENT
  Sex: Male
  Weight: 77.11 kg

DRUGS (3)
  1. ANTI-ANXIETY [Concomitant]
     Indication: ANXIETY
  2. STELARA [Suspect]
     Indication: PSORIASIS
     Route: 058
     Dates: start: 20111018
  3. ADDERALL 5 [Concomitant]
     Indication: ATTENTION DEFICIT/HYPERACTIVITY DISORDER

REACTIONS (4)
  - ABNORMAL LOSS OF WEIGHT [None]
  - VIRAL INFECTION [None]
  - BLOOD PRESSURE DECREASED [None]
  - WHITE BLOOD CELL COUNT ABNORMAL [None]
